FAERS Safety Report 13589093 (Version 5)
Quarter: 2017Q3

REPORT INFORMATION
  Report Type: Spontaneous
  Country: JP (occurrence: JP)
  Receive Date: 20170529
  Receipt Date: 20170921
  Transmission Date: 20171127
  Serious: Yes (Life-Threatening, Hospitalization)
  Sender: FDA-Public Use
  Company Number: JP-ROCHE-1847093

PATIENT
  Age: 36 Year
  Sex: Male
  Weight: 54 kg

DRUGS (15)
  1. CELLCEPT [Suspect]
     Active Substance: MYCOPHENOLATE MOFETIL\MYCOPHENOLATE MOFETIL HYDROCHLORIDE
     Route: 048
     Dates: start: 20161123, end: 20170427
  2. RITUXAN [Suspect]
     Active Substance: RITUXIMAB
     Indication: HISTIOCYTOSIS HAEMATOPHAGIC
     Route: 041
     Dates: start: 20160916, end: 20160916
  3. PREDONINE [Suspect]
     Active Substance: PREDNISOLONE
     Indication: SYSTEMIC LUPUS ERYTHEMATOSUS
     Dosage: 12-20 MG, FRACTIONATION DOSE UNCERTAIN, FREQUENCY AND DOSE INTERVAL UNCERTAINTY
     Route: 048
     Dates: start: 20150619, end: 20160314
  4. E KEPPRA [Concomitant]
     Active Substance: LEVETIRACETAM
     Route: 048
     Dates: start: 201609
  5. TACROLIMUS HYDRATE [Concomitant]
     Active Substance: TACROLIMUS
     Dosage: 1-2MG, FRACTIONATION DOSE UNCERTAIN, FREQUENCY AND DOSE INTERVAL UNCERTAINTY
     Route: 048
     Dates: start: 20170217, end: 20170324
  6. CELLCEPT [Suspect]
     Active Substance: MYCOPHENOLATE MOFETIL\MYCOPHENOLATE MOFETIL HYDROCHLORIDE
     Indication: SYSTEMIC LUPUS ERYTHEMATOSUS
     Dosage: 1000-3000 MG FRACTIONATION DOSE UNCERTAIN, FREQUENCY AND DOSE INTERVAL UNCERTAINTIES
     Route: 048
     Dates: start: 20161019
  7. RITUXAN [Suspect]
     Active Substance: RITUXIMAB
     Route: 041
     Dates: start: 20161006, end: 20161006
  8. PREDONINE [Suspect]
     Active Substance: PREDNISOLONE
     Dosage: 5-10 MG, FRACTIONATION DOSE UNCERTAIN, FREQUENCY AND DOSE INTERVAL UNCERTAINTY
     Route: 048
     Dates: start: 20170127
  9. METHYL PREDNISOLONE SODIUM SUCCINATE [Suspect]
     Active Substance: METHYLPREDNISOLONE SODIUM SUCCINATE
     Indication: SYSTEMIC LUPUS ERYTHEMATOSUS
     Dosage: FRACTIONATION DOSE UNCERTAIN, FREQUENCY AND DOSE INTERVAL UNCERTAINTY
     Route: 041
     Dates: start: 20160314, end: 20160316
  10. RINDERON V [Suspect]
     Active Substance: BETAMETHASONE VALERATE
     Indication: SYSTEMIC LUPUS ERYTHEMATOSUS
     Dosage: 1.00-6.5 FRACTIONATION DOSE UNCERTAIN, FREQUENCY AND DOSE INTERVAL UNCERTAINTY
     Route: 048
     Dates: start: 20160405, end: 20170113
  11. PREDONINE [Suspect]
     Active Substance: PREDNISOLONE
     Dosage: 60 MG, FRACTIONATION DOSE UNCERTAIN, FREQUENCY AND DOSE INTERVAL UNCERTAINTY
     Route: 048
     Dates: start: 20160317, end: 20160404
  12. RITUXAN [Suspect]
     Active Substance: RITUXIMAB
     Route: 041
     Dates: start: 20160929, end: 20160929
  13. TAKECAB [Concomitant]
     Active Substance: VONOPRAZAN FUMURATE
     Route: 065
     Dates: start: 2016
  14. E KEPPRA [Concomitant]
     Active Substance: LEVETIRACETAM
     Route: 065
     Dates: start: 201609
  15. RITUXAN [Suspect]
     Active Substance: RITUXIMAB
     Indication: SYSTEMIC LUPUS ERYTHEMATOSUS
     Route: 041
     Dates: start: 20160908, end: 20160908

REACTIONS (4)
  - Progressive multifocal leukoencephalopathy [Not Recovered/Not Resolved]
  - Fall [Unknown]
  - Off label use [Unknown]
  - Posterior reversible encephalopathy syndrome [Recovered/Resolved]

NARRATIVE: CASE EVENT DATE: 201702
